FAERS Safety Report 4619904-X (Version None)
Quarter: 2005Q1

REPORT INFORMATION
  Report Type: 
  Country: None (occurrence: None)
  Receive Date: 20050328
  Receipt Date: 20040709
  Transmission Date: 20050727
  Serious: Yes (Disabling, Other)
  Sender: FDA-Public Use
  Company Number: 200412293JP

PATIENT
  Age: 48 Year
  Sex: Female
  Weight: 46 kg

DRUGS (11)
  1. ARAVA [Suspect]
     Indication: RHEUMATOID ARTHRITIS
     Route: 048
     Dates: start: 20040402, end: 20040707
  2. RHEUMATREX [Concomitant]
     Indication: RHEUMATOID ARTHRITIS
     Dosage: DOSE: 6MG/WEEK
     Route: 048
     Dates: start: 20031001, end: 20040401
  3. IMURAN [Concomitant]
     Indication: RHEUMATOID ARTHRITIS
     Route: 048
     Dates: start: 20031001, end: 20040401
  4. VOLTAREN [Concomitant]
     Indication: RHEUMATOID ARTHRITIS
     Route: 048
     Dates: start: 20031001, end: 20040511
  5. SELBEX [Concomitant]
     Indication: GASTRITIS
     Route: 048
     Dates: start: 20031001
  6. SELBEX [Concomitant]
     Indication: PROPHYLAXIS
     Route: 048
     Dates: start: 20031001
  7. ALTAT [Concomitant]
     Indication: GASTRITIS
     Route: 048
     Dates: start: 20031001, end: 20040525
  8. ALTAT [Concomitant]
     Indication: PROPHYLAXIS
     Route: 048
     Dates: start: 20031001, end: 20040525
  9. TAKEPRON [Concomitant]
     Indication: GASTRIC ULCER
     Dates: start: 20040526, end: 20040622
  10. OSTELUC [Concomitant]
     Indication: RHEUMATOID ARTHRITIS
     Route: 048
     Dates: start: 20040512, end: 20040622
  11. QUESTRAN [Concomitant]
     Indication: ADVERSE DRUG REACTION
     Route: 048
     Dates: start: 20040707

REACTIONS (15)
  - ASCITES [None]
  - ATYPICAL MYCOBACTERIAL INFECTION [None]
  - BLOOD CHOLESTEROL INCREASED [None]
  - BLOOD FIBRINOGEN INCREASED [None]
  - BLOOD TRIGLYCERIDES INCREASED [None]
  - BLOOD URINE PRESENT [None]
  - DIALYSIS [None]
  - FIBRIN D DIMER INCREASED [None]
  - GLOMERULOSCLEROSIS [None]
  - NEPHROTIC SYNDROME [None]
  - PLEURAL EFFUSION [None]
  - PSEUDOMONAS INFECTION [None]
  - REFUSAL OF TREATMENT BY PATIENT [None]
  - SPUTUM CULTURE POSITIVE [None]
  - WHITE BLOOD CELL COUNT INCREASED [None]
